FAERS Safety Report 8616751-9 (Version None)
Quarter: 2012Q3

REPORT INFORMATION
  Report Type: 
  Country: None (occurrence: None)
  Receive Date: 20120823
  Receipt Date: 20120803
  Transmission Date: 20120928
  Serious: No
  Sender: FDA-Public Use
  Company Number: US-009507513-1208USA002406

PATIENT

DRUGS (1)
  1. VICTRELIS [Suspect]
     Indication: HEPATITIS C
     Dosage: 800 MG, TID
     Route: 048
     Dates: start: 20120711, end: 20120802

REACTIONS (5)
  - DEPRESSION [None]
  - PAIN [None]
  - RASH GENERALISED [None]
  - SLEEP DISORDER [None]
  - DECREASED APPETITE [None]
